FAERS Safety Report 17865846 (Version 1)
Quarter: 2020Q2

REPORT INFORMATION
  Report Type: Report from Study
  Country: US (occurrence: US)
  Receive Date: 20200605
  Receipt Date: 20200605
  Transmission Date: 20200714
  Serious: Yes (Hospitalization)
  Sender: FDA-Public Use
  Company Number: US-VERASTEM-2016-00172

PATIENT

DRUGS (2)
  1. BORTEZOMIB. [Suspect]
     Active Substance: BORTEZOMIB
     Indication: CUTANEOUS T-CELL LYMPHOMA
     Dosage: UNK
     Route: 058
     Dates: start: 20160531, end: 20160611
  2. IPI-145 [Suspect]
     Active Substance: DUVELISIB
     Indication: CUTANEOUS T-CELL LYMPHOMA
     Dosage: UNK
     Route: 048
     Dates: start: 20160531, end: 20160620

REACTIONS (4)
  - Dehydration [Recovered/Resolved]
  - Pyrexia [Recovered/Resolved]
  - Dyspnoea [Recovered/Resolved]
  - Diarrhoea [Recovered/Resolved]

NARRATIVE: CASE EVENT DATE: 20160615
